FAERS Safety Report 8692456 (Version 2)
Quarter: 2012Q4

REPORT INFORMATION
  Report Type: 
  Country: GB (occurrence: GB)
  Receive Date: 20120730
  Receipt Date: 20121127
  Transmission Date: 20130627
  Serious: Yes (Other)
  Sender: FDA-Public Use
  Company Number: GB-ELI_LILLY_AND_COMPANY-GB201207004965

PATIENT
  Age: 10 Year
  Sex: Male
  Weight: 28.5 kg

DRUGS (6)
  1. ATOMOXETINE HYDROCHLORIDE [Suspect]
     Indication: ATTENTION DEFICIT/HYPERACTIVITY DISORDER
     Dosage: 10mg, daily
  2. ATOMOXETINE HYDROCHLORIDE [Suspect]
     Dosage: 25mg, daily
     Route: 048
     Dates: start: 201101, end: 201105
  3. CALPOL [Concomitant]
  4. BRUFEN [Concomitant]
  5. BIO-MELATONIN [Concomitant]
     Dosage: 4.5 mg, each evening
  6. OMACOR [Concomitant]

REACTIONS (10)
  - Electrocardiogram QT prolonged [Recovered/Resolved]
  - Long QT syndrome [Unknown]
  - Mitral valve incompetence [Unknown]
  - Aortic valve incompetence [Unknown]
  - Tricuspid valve incompetence [Unknown]
  - Dyspnoea [Recovered/Resolved]
  - Chest pain [Unknown]
  - Tachycardia [Unknown]
  - Paraesthesia [Unknown]
  - Palpitations [Recovered/Resolved]
